FAERS Safety Report 6462369-6 (Version None)
Quarter: 2009Q4

REPORT INFORMATION
  Report Type: 
  Country: None (occurrence: None)
  Receive Date: 20091130
  Receipt Date: 20091030
  Transmission Date: 20100525
  Serious: No
  Sender: FDA-Public Use
  Company Number: US-BAYER-200938147NA

PATIENT
  Age: 29 Year
  Sex: Female
  Weight: 86 kg

DRUGS (2)
  1. MIRENA [Suspect]
     Indication: CONTRACEPTION
     Dosage: CONTINUOUS
     Route: 015
     Dates: start: 20090501
  2. CUTALBITAL [Concomitant]
     Indication: MIGRAINE

REACTIONS (7)
  - BACK PAIN [None]
  - FATIGUE [None]
  - FEELING ABNORMAL [None]
  - HEADACHE [None]
  - NAUSEA [None]
  - VAGINAL HAEMORRHAGE [None]
  - WEIGHT INCREASED [None]
